FAERS Safety Report 14316314 (Version 1)
Quarter: 2017Q4

REPORT INFORMATION
  Report Type: Spontaneous
  Country: US (occurrence: US)
  Receive Date: 20171222
  Receipt Date: 20171222
  Transmission Date: 20180321
  Serious: No
  Sender: FDA-Public Use
  Company Number: US-AMGEN-USASP2017187248

PATIENT
  Age: 59 Year
  Sex: Female

DRUGS (1)
  1. ENBREL [Suspect]
     Active Substance: ETANERCEPT
     Indication: ANKYLOSING SPONDYLITIS
     Dosage: 50 MG, QWK
     Route: 065
     Dates: start: 201710

REACTIONS (5)
  - Malaise [Unknown]
  - Drug dose omission [Unknown]
  - Cough [Unknown]
  - Wrong technique in product usage process [Unknown]
  - Secretion discharge [Unknown]

NARRATIVE: CASE EVENT DATE: 2017
